FAERS Safety Report 25375585 (Version 1)
Quarter: 2025Q2

REPORT INFORMATION
  Report Type: Spontaneous
  Country: US (occurrence: US)
  Receive Date: 20250529
  Receipt Date: 20250529
  Transmission Date: 20250716
  Serious: Yes (Other)
  Sender: BRISTOL-MYERS SQUIBB COMPANY
  Company Number: US-BRISTOL-MYERS SQUIBB COMPANY-2025-075430

PATIENT
  Age: 65 Year
  Sex: Male

DRUGS (3)
  1. POMALYST [Suspect]
     Active Substance: POMALIDOMIDE
     Indication: Product used for unknown indication
  2. ISATUXIMAB [Suspect]
     Active Substance: ISATUXIMAB
     Indication: Plasma cell myeloma
     Dosage: DOSE DESCRIPTION AS 1374 PER KG.
     Route: 042
     Dates: start: 20230817
  3. ISATUXIMAB [Suspect]
     Active Substance: ISATUXIMAB
     Route: 042

REACTIONS (3)
  - Neuropathy peripheral [Unknown]
  - Pyrexia [Unknown]
  - Adverse drug reaction [Unknown]
